APPROVED DRUG PRODUCT: GIAPREZA
Active Ingredient: ANGIOTENSIN II ACETATE
Strength: EQ 0.5MG BASE/ML (EQ 0.5MG BASE/ML)
Dosage Form/Route: SOLUTION;INTRAVENOUS
Application: N209360 | Product #003
Applicant: LA JOLLA PHARMA LLC
Approved: Dec 23, 2021 | RLD: Yes | RS: Yes | Type: RX

PATENTS:
Patent 11559559 | Expires: Dec 18, 2034
Patent 11219662 | Expires: Jan 6, 2037
Patent 10500247 | Expires: Dec 16, 2029
Patent 10500247 | Expires: Dec 16, 2029
Patent 10493124 | Expires: Dec 18, 2034
Patent 10548943 | Expires: Dec 16, 2029
Patent 10548943 | Expires: Dec 16, 2029
Patent 11096983 | Expires: Dec 18, 2034
Patent 11096983 | Expires: Dec 18, 2034
Patent 10028995 | Expires: Dec 18, 2034
Patent 10335451 | Expires: Dec 16, 2029
Patent 9572856 | Expires: Jul 18, 2031
Patent 9867863 | Expires: Dec 16, 2029
Patent 9220745 | Expires: Dec 18, 2034
Patent 9220745 | Expires: Dec 18, 2034